FAERS Safety Report 4559143-4 (Version None)
Quarter: 2005Q1

REPORT INFORMATION
  Report Type: 
  Country: None (occurrence: None)
  Receive Date: 20050121
  Receipt Date: 20050121
  Transmission Date: 20050727
  Serious: No
  Sender: FDA-Public Use
  Company Number: None

PATIENT
  Age: 7 Decade
  Sex: Female

DRUGS (9)
  1. WARFARIN [Suspect]
  2. DIGOXIN [Suspect]
  3. SIMVASTATIN [Suspect]
  4. OLANZAPINE [Suspect]
  5. SERTRALINE HCL [Suspect]
  6. SENNA [Suspect]
  7. DIAZEPAM [Suspect]
  8. LACTULOSE [Suspect]
  9. THYROXINE [Suspect]

REACTIONS (2)
  - FOOD INTERACTION [None]
  - INTERNATIONAL NORMALISED RATIO FLUCTUATION [None]
